FAERS Safety Report 5339612-X (Version None)
Quarter: 2007Q2

REPORT INFORMATION
  Report Type: 
  Country: None (occurrence: None)
  Receive Date: 20070525
  Receipt Date: 20070517
  Transmission Date: 20071010
  Serious: Yes (Other)
  Sender: FDA-Public Use
  Company Number: 2007SP009871

PATIENT
  Age: 13 Year
  Sex: Female

DRUGS (1)
  1. CLARITIN [Suspect]
     Indication: RHINORRHOEA
     Dosage: PO
     Route: 048
     Dates: start: 20070512, end: 20070514

REACTIONS (4)
  - DYSPNOEA [None]
  - FEELING ABNORMAL [None]
  - PHARYNGEAL OEDEMA [None]
  - SWOLLEN TONGUE [None]
